FAERS Safety Report 10274785 (Version 2)
Quarter: 2015Q1

REPORT INFORMATION
  Report Type: Spontaneous
  Country: US (occurrence: US)
  Receive Date: 20140702
  Receipt Date: 20150102
  Transmission Date: 20150720
  Serious: Yes (Other)
  Sender: FDA-Public Use
  Company Number: US-GILEAD-2014-0107347

PATIENT
  Age: 83 Year
  Sex: Male

DRUGS (2)
  1. REMODULIN [Concomitant]
     Active Substance: TREPROSTINIL
  2. LETAIRIS [Suspect]
     Active Substance: AMBRISENTAN
     Indication: PULMONARY ARTERIAL HYPERTENSION
     Dosage: 10 MG, QD
     Route: 065
     Dates: start: 20111118

REACTIONS (5)
  - Drug ineffective [Unknown]
  - Back pain [Unknown]
  - Pulmonary arterial hypertension [Unknown]
  - Chest pain [Unknown]
  - Musculoskeletal pain [Unknown]

NARRATIVE: CASE EVENT DATE: 20140627
